FAERS Safety Report 5332142-0 (Version None)
Quarter: 2007Q2

REPORT INFORMATION
  Report Type: 
  Country: None (occurrence: None)
  Receive Date: 20070523
  Receipt Date: 20070515
  Transmission Date: 20071010
  Serious: Yes (Hospitalization)
  Sender: FDA-Public Use
  Company Number: FR-ROCHE-497978

PATIENT
  Age: 40 Year
  Sex: Male

DRUGS (2)
  1. PEGASYS [Suspect]
     Route: 065
  2. COPEGUS [Suspect]
     Indication: DRUG USE FOR UNKNOWN INDICATION
     Route: 065

REACTIONS (1)
  - ATRIOVENTRICULAR BLOCK [None]
